FAERS Safety Report 10176768 (Version 1)
Quarter: 2014Q2

REPORT INFORMATION
  Report Type: Spontaneous
  Country: FR (occurrence: FR)
  Receive Date: 20140516
  Receipt Date: 20140516
  Transmission Date: 20141212
  Serious: Yes (Hospitalization)
  Sender: FDA-Public Use
  Company Number: FR-BRISTOL-MYERS SQUIBB COMPANY-20731238

PATIENT
  Age: 86 Year
  Sex: Male

DRUGS (12)
  1. COUMADINE [Suspect]
     Route: 048
     Dates: start: 20140214, end: 20140219
  2. LOVENOX [Interacting]
     Indication: PULMONARY EMBOLISM
     Dosage: INTRUPTED ON 19FEB2014?RESTARTED ON 24FEB2014:0.4/D
     Route: 058
     Dates: start: 20140213
  3. ASPEGIC [Interacting]
     Indication: PROPHYLAXIS
     Route: 048
     Dates: end: 20140212
  4. TAHOR [Concomitant]
  5. ALLOPURINOL [Concomitant]
  6. BECOTIDE [Concomitant]
  7. CARDENSIEL [Concomitant]
  8. DOLIPRANE [Concomitant]
  9. INEXIUM [Concomitant]
  10. TANAKAN [Concomitant]
     Dosage: 1DF: 40 UNIT NOS
  11. TEMESTA [Concomitant]
  12. XYZALL [Concomitant]

REACTIONS (2)
  - Muscle haemorrhage [Recovered/Resolved]
  - Drug interaction [Unknown]
